FAERS Safety Report 5521160-5 (Version None)
Quarter: 2007Q4

REPORT INFORMATION
  Report Type: 
  Country: None (occurrence: None)
  Receive Date: 20071119
  Receipt Date: 20071114
  Transmission Date: 20080405
  Serious: Yes (Hospitalization)
  Sender: FDA-Public Use
  Company Number: IT-SHR-IT-2007-043364

PATIENT
  Age: 80 Year
  Sex: Female

DRUGS (2)
  1. ULTRAVIST 370 [Suspect]
     Dosage: 100 ML, 1 DOSE
     Route: 040
     Dates: start: 20071031, end: 20071031
  2. SOLU-MEDROL [Concomitant]

REACTIONS (3)
  - HYPOTENSION [None]
  - LOSS OF CONSCIOUSNESS [None]
  - RADIAL PULSE ABNORMAL [None]
